FAERS Safety Report 6660563-2 (Version None)
Quarter: 2010Q1

REPORT INFORMATION
  Report Type: 
  Country: None (occurrence: None)
  Receive Date: 20100331
  Receipt Date: 20100119
  Transmission Date: 20100710
  Serious: Yes (Other)
  Sender: FDA-Public Use
  Company Number: US-JNJFOC-20100202115

PATIENT
  Sex: Female

DRUGS (3)
  1. EXTRA STRENGTH TYLENOL PM [Suspect]
     Indication: INSOMNIA
     Dosage: 6-8 DOSES
     Route: 048
  2. EXTRA STRENGTH TYLENOL PM [Suspect]
     Indication: PAIN
     Dosage: 6-8 DOSES
     Route: 048
  3. PAIN MEDICATION NOS [Concomitant]

REACTIONS (3)
  - AGITATION [None]
  - DRUG DEPENDENCE [None]
  - INTENTIONAL DRUG MISUSE [None]
